FAERS Safety Report 8573932-0 (Version None)
Quarter: 2012Q3

REPORT INFORMATION
  Report Type: 
  Country: None (occurrence: None)
  Receive Date: 20120806
  Receipt Date: 20091125
  Transmission Date: 20120928
  Serious: Yes (Death, Hospitalization, Other)
  Sender: FDA-Public Use
  Company Number: DE-CELGENEUS-062-21880-12060083

PATIENT
  Age: 60 Year
  Sex: Female
  Weight: 60 kg

DRUGS (7)
  1. LOW MOLECULAR HEPARINS [Concomitant]
     Indication: ANTICOAGULANT THERAPY
     Route: 065
  2. DALTEPARIN SODIUM [Concomitant]
     Indication: THROMBOSIS PROPHYLAXIS
     Route: 065
  3. REVLIMID [Suspect]
     Indication: MULTIPLE MYELOMA
     Dosage: 10 MILLIGRAM
     Route: 048
     Dates: start: 20081115, end: 20090612
  4. BISPHOSPHONATES [Concomitant]
     Route: 065
  5. METOCLOPRAMIDE [Concomitant]
     Route: 065
  6. RED BLOOD CELLS [Concomitant]
     Dates: start: 20080101
  7. DEXAMETHASONE [Concomitant]
     Indication: MULTIPLE MYELOMA
     Route: 065
     Dates: start: 20081115, end: 20090612

REACTIONS (11)
  - URINARY TRACT INFECTION [None]
  - BLOOD CREATININE INCREASED [None]
  - BACK PAIN [None]
  - LEUKOPENIA [None]
  - DYSPNOEA EXERTIONAL [None]
  - SEPSIS [None]
  - ANAEMIA [None]
  - MALAISE [None]
  - HYPOTONIA [None]
  - HYPERHIDROSIS [None]
  - PAIN [None]
